FAERS Safety Report 17653932 (Version 1)
Quarter: 2020Q2

REPORT INFORMATION
  Report Type: Spontaneous
  Country: JP (occurrence: JP)
  Receive Date: 20200410
  Receipt Date: 20200410
  Transmission Date: 20200713
  Serious: Yes (Other)
  Sender: FDA-Public Use
  Company Number: JP-NOVEN PHARMACEUTICALS, INC.-JP2020000292

PATIENT

DRUGS (1)
  1. ESTRADIOL/NORETHISTERONE ACETATE [Suspect]
     Active Substance: ESTRADIOL\NORETHINDRONE ACETATE
     Indication: MENOPAUSAL SYMPTOMS
     Dosage: UNK, 2/WK
     Route: 062
     Dates: start: 20190820, end: 20200121

REACTIONS (4)
  - Conjunctival haemorrhage [Recovering/Resolving]
  - Visual impairment [Recovering/Resolving]
  - Hypertension [Recovering/Resolving]
  - Blood triglycerides increased [Recovering/Resolving]

NARRATIVE: CASE EVENT DATE: 20200107
